FAERS Safety Report 18912208 (Version 4)
Quarter: 2021Q2

REPORT INFORMATION
  Report Type: Report from Study
  Country: DE (occurrence: DE)
  Receive Date: 20210219
  Receipt Date: 20210502
  Transmission Date: 20210717
  Serious: Yes (Life-Threatening, Hospitalization)
  Sender: FDA-Public Use
  Company Number: DE-JNJFOC-20210229193

PATIENT
  Age: 71 Year
  Sex: Female
  Weight: 48 kg

DRUGS (9)
  1. DEXAMETHASONE. [Suspect]
     Active Substance: DEXAMETHASONE
     Indication: PLASMA CELL MYELOMA
     Route: 065
     Dates: start: 20200709
  2. DEXAMETHASONE. [Suspect]
     Active Substance: DEXAMETHASONE
     Route: 065
     Dates: end: 20200730
  3. TORASEMID [Concomitant]
     Active Substance: TORSEMIDE
     Route: 048
  4. PARACETAMOL [Concomitant]
     Active Substance: ACETAMINOPHEN
     Dosage: BEFORE DARATUMUMAB
     Route: 048
     Dates: start: 20200709, end: 20200723
  5. TAVEGIL [CLEMASTINE] [Concomitant]
     Active Substance: CLEMASTINE
     Dosage: BEFORE DARATUMUMAB
     Route: 042
     Dates: start: 20200709, end: 20200723
  6. DARATUMUMAB [Suspect]
     Active Substance: DARATUMUMAB
     Indication: PLASMA CELL MYELOMA
     Route: 042
     Dates: start: 20200716, end: 20200723
  7. COTRIMOXAZOLE [Concomitant]
     Active Substance: SULFAMETHOXAZOLE\TRIMETHOPRIM
     Dosage: MONDAY+ THURSDAY
     Route: 048
     Dates: start: 20200709, end: 20200730
  8. REVLIMID [Suspect]
     Active Substance: LENALIDOMIDE
     Indication: PLASMA CELL MYELOMA
     Route: 065
     Dates: start: 20200709, end: 20200729
  9. DEXAMETHASONE. [Concomitant]
     Active Substance: DEXAMETHASONE
     Dosage: BEFORE DARATUMUMAB
     Route: 042
     Dates: start: 20200709, end: 20200723

REACTIONS (1)
  - Stevens-Johnson syndrome [Recovered/Resolved]

NARRATIVE: CASE EVENT DATE: 20200730
